FAERS Safety Report 6979606-1 (Version None)
Quarter: 2010Q3

REPORT INFORMATION
  Report Type: 
  Country: None (occurrence: None)
  Receive Date: 20100913
  Receipt Date: 20100902
  Transmission Date: 20110219
  Serious: Yes (Other)
  Sender: FDA-Public Use
  Company Number: US-MERCK-1001USA01548

PATIENT
  Age: 80 Year
  Sex: Female
  Weight: 68 kg

DRUGS (7)
  1. FOSAMAX [Suspect]
     Indication: OSTEOPENIA
     Route: 048
     Dates: start: 19981001
  2. FOSAMAX [Suspect]
     Indication: OSTEOPOROSIS
     Route: 048
     Dates: start: 19981001
  3. CALCIUM (UNSPECIFIED) [Concomitant]
     Route: 065
  4. VITAMIN D (UNSPECIFIED) [Concomitant]
     Route: 065
  5. LIDODERM [Concomitant]
     Indication: PAIN
     Route: 061
  6. FOSAMAX PLUS D [Suspect]
     Indication: OSTEOPENIA
     Route: 048
     Dates: start: 20061001, end: 20090301
  7. FOSAMAX PLUS D [Suspect]
     Indication: OSTEOPOROSIS
     Route: 048
     Dates: start: 20061001, end: 20090301

REACTIONS (38)
  - ACROCHORDON [None]
  - ACTINIC KERATOSIS [None]
  - ADVERSE DRUG REACTION [None]
  - ANGIOPATHY [None]
  - ARTHROPATHY [None]
  - BODY HEIGHT DECREASED [None]
  - BURSITIS [None]
  - CHRONIC SINUSITIS [None]
  - COMPRESSION FRACTURE [None]
  - CONTUSION [None]
  - DRUG INEFFECTIVE [None]
  - DRUG INTOLERANCE [None]
  - FALL [None]
  - GASTROINTESTINAL DISORDER [None]
  - GASTROOESOPHAGEAL REFLUX DISEASE [None]
  - HYPOAESTHESIA ORAL [None]
  - IMPAIRED HEALING [None]
  - JOINT INJURY [None]
  - KYPHOSIS [None]
  - LUMBAR RADICULOPATHY [None]
  - MACROCYTOSIS [None]
  - MACULAR DEGENERATION [None]
  - MUSCULOSKELETAL PAIN [None]
  - NEPHROLITHIASIS [None]
  - ORAL DISORDER [None]
  - OSTEOARTHRITIS [None]
  - OSTEONECROSIS OF JAW [None]
  - PAIN IN JAW [None]
  - SKIN CANCER [None]
  - SKIN LESION [None]
  - SPINAL COMPRESSION FRACTURE [None]
  - STOMATITIS [None]
  - TENDONITIS [None]
  - TOOTH DISORDER [None]
  - TRIGGER FINGER [None]
  - UTERINE DISORDER [None]
  - VITAMIN B12 DEFICIENCY [None]
  - WEIGHT INCREASED [None]
